FAERS Safety Report 20155138 (Version 1)
Quarter: 2021Q4

REPORT INFORMATION
  Report Type: Spontaneous
  Country: US (occurrence: None)
  Receive Date: 20211206
  Receipt Date: 20211206
  Transmission Date: 20220304
  Serious: No
  Sender: FDA-Public Use
  Company Number: None

PATIENT
  Age: 59 Year
  Sex: Female

DRUGS (1)
  1. OPSUMIT [Suspect]
     Active Substance: MACITENTAN
     Indication: Pulmonary arterial hypertension
     Dosage: FREQUENCY : DAILY;?
     Route: 048
     Dates: start: 20190924

REACTIONS (6)
  - Dyspnoea [None]
  - Wheezing [None]
  - Nasal congestion [None]
  - Cough [None]
  - Oropharyngeal pain [None]
  - Headache [None]

NARRATIVE: CASE EVENT DATE: 20211204
